FAERS Safety Report 6546010-X (Version None)
Quarter: 2010Q1

REPORT INFORMATION
  Report Type: 
  Country: None (occurrence: None)
  Receive Date: 20100119
  Receipt Date: 20100119
  Transmission Date: 20100710
  Serious: Yes (Death)
  Sender: FDA-Public Use
  Company Number: None

PATIENT
  Age: 79 Year
  Sex: Male
  Weight: 88.4514 kg

DRUGS (8)
  1. MUSE [Suspect]
     Indication: ERECTILE DYSFUNCTION
     Dosage: 125 MCG ONCE
     Dates: start: 20090725, end: 20090725
  2. NITROGLYCERIN [Concomitant]
  3. CARVEDILOL [Concomitant]
  4. HYDROCHLOROTHIAZIDE [Concomitant]
  5. LISINOPRIL [Concomitant]
  6. SIMVASTATIN [Concomitant]
  7. TERAZOSIN HCL [Concomitant]
  8. TRAZADON [Concomitant]

REACTIONS (3)
  - COUGH [None]
  - MALAISE [None]
  - RESPIRATORY ARREST [None]
